FAERS Safety Report 19999620 (Version 2)
Quarter: 2021Q4

REPORT INFORMATION
  Report Type: Spontaneous
  Country: CN (occurrence: CN)
  Receive Date: 20211026
  Receipt Date: 20211109
  Transmission Date: 20220303
  Serious: Yes (Other)
  Sender: FDA-Public Use
  Company Number: CN-ABBVIE-21K-035-4128495-00

PATIENT
  Age: 66 Year
  Sex: Female

DRUGS (7)
  1. VALPROATE SODIUM [Interacting]
     Active Substance: VALPROATE SODIUM
     Indication: Seizure
     Route: 065
  2. MEROPENEM [Interacting]
     Active Substance: MEROPENEM
     Indication: Pseudomonas infection
     Route: 065
  3. MEROPENEM [Interacting]
     Active Substance: MEROPENEM
     Indication: Infection prophylaxis
     Route: 065
  4. PHENOBARBITAL [Interacting]
     Active Substance: PHENOBARBITAL
     Indication: Seizure
     Route: 030
  5. PHENOBARBITAL [Interacting]
     Active Substance: PHENOBARBITAL
     Route: 030
  6. LEVETIRACETAM [Concomitant]
     Active Substance: LEVETIRACETAM
     Indication: Product used for unknown indication
     Route: 065
  7. CEFOPERAZONE\TAZOBACTAM SODIUM [Concomitant]
     Active Substance: CEFOPERAZONE\TAZOBACTAM SODIUM
     Indication: Product used for unknown indication
     Route: 065

REACTIONS (13)
  - Escherichia test positive [Unknown]
  - Pseudomonas infection [Unknown]
  - Altered state of consciousness [Unknown]
  - Convulsions local [Unknown]
  - Seizure [Unknown]
  - Neutrophil percentage increased [Unknown]
  - Procalcitonin increased [Unknown]
  - Urinary tract infection [Unknown]
  - Decubitus ulcer [Unknown]
  - Pneumonitis [Unknown]
  - White blood cell count increased [Unknown]
  - Anticonvulsant drug level decreased [Unknown]
  - Drug interaction [Unknown]
